FAERS Safety Report 9815796 (Version 2)
Quarter: 2014Q1

REPORT INFORMATION
  Report Type: Report from Study
  Country: US (occurrence: US)
  Receive Date: 20140114
  Receipt Date: 20140114
  Transmission Date: 20141002
  Serious: Yes (Hospitalization)
  Sender: FDA-Public Use
  Company Number: US-ROCHE-772074

PATIENT
  Age: 58 Year
  Sex: 0

DRUGS (8)
  1. OXALIPLATIN [Suspect]
     Indication: GASTROOESOPHAGEAL CANCER
     Dosage: 85 MG/M2, Q14D?OVER 2 HOURS ON DAY 1?LAST DOSE OF OXALIPLATIN ON 21/JAN/2011
     Route: 042
  2. FOLINIC ACID [Suspect]
     Indication: GASTROOESOPHAGEAL CANCER
     Dosage: 200 MG/M2, Q14D?OVER 2 HOURS ON DAY 1?LAST DOSE OF FOLINIC ACID ON 21/JAN/2011
     Route: 042
  3. FLUOROURACIL [Suspect]
     Indication: GASTROOESOPHAGEAL CANCER
     Dosage: 2400 MG/M2, Q14D?OVER 46-48 HOURS ON DAYS 1 AND 2?LAST DOSE OF FLUOROURACIL ON 21/JAN/2011
     Route: 041
  4. FLUOROURACIL [Suspect]
     Dosage: ON DAY 1
     Route: 040
  5. TAXOTERE [Concomitant]
     Route: 065
     Dates: start: 20110211
  6. TAXOTERE [Concomitant]
     Route: 065
     Dates: start: 20110218
  7. PACLITAXEL [Concomitant]
     Route: 065
     Dates: start: 20110204
  8. VISMODEGIB [Suspect]
     Indication: GASTROOESOPHAGEAL CANCER
     Dosage: 150 MG, QD
     Route: 048

REACTIONS (4)
  - Pneumonia [Recovered/Resolved]
  - Lung infection [Recovered/Resolved]
  - Dehydration [Unknown]
  - Diarrhoea [Unknown]
